FAERS Safety Report 13008670 (Version 1)
Quarter: 2016Q4

REPORT INFORMATION
  Report Type: Spontaneous
  Country: US (occurrence: US)
  Receive Date: 20161208
  Receipt Date: 20161208
  Transmission Date: 20170207
  Serious: No
  Sender: FDA-Public Use
  Company Number: US-PFIZER INC-2016565682

PATIENT
  Sex: Female

DRUGS (1)
  1. LYRICA [Suspect]
     Active Substance: PREGABALIN
     Dosage: 225 MG, UNK

REACTIONS (6)
  - Somnolence [Unknown]
  - Irritability [Unknown]
  - Nightmare [Unknown]
  - Feeling abnormal [Unknown]
  - Balance disorder [Unknown]
  - Sedation [Unknown]
